FAERS Safety Report 7479249-X (Version None)
Quarter: 2011Q2

REPORT INFORMATION
  Report Type: 
  Country: None (occurrence: None)
  Receive Date: 20110513
  Receipt Date: 20110509
  Transmission Date: 20111010
  Serious: Yes (Life-Threatening, Other)
  Sender: FDA-Public Use
  Company Number: B0718802A

PATIENT
  Sex: Female
  Weight: 51 kg

DRUGS (2)
  1. LAPATINIB [Suspect]
     Indication: BREAST CANCER
     Dosage: 250Z PER DAY
     Route: 065
     Dates: start: 20110319, end: 20110329
  2. LETROZOLE [Concomitant]
     Indication: BREAST CANCER
     Dates: start: 20110319, end: 20110329

REACTIONS (4)
  - EPISTAXIS [None]
  - OEDEMA MUCOSAL [None]
  - RASH [None]
  - ANGIOPATHY [None]
